FAERS Safety Report 12624555 (Version 3)
Quarter: 2016Q4

REPORT INFORMATION
  Report Type: Report from Study
  Country: US (occurrence: US)
  Receive Date: 20160805
  Receipt Date: 20161031
  Transmission Date: 20170207
  Serious: Yes (Hospitalization)
  Sender: FDA-Public Use
  Company Number: US-GILEAD-2016-0226185

PATIENT
  Age: 52 Year
  Sex: Female

DRUGS (2)
  1. AMBRISENTAN [Suspect]
     Active Substance: AMBRISENTAN
     Dosage: 10 MG, QD
     Route: 048
     Dates: start: 20160801
  2. AMBRISENTAN [Suspect]
     Active Substance: AMBRISENTAN
     Indication: PULMONARY ARTERIAL HYPERTENSION
     Dosage: 10 MG, QD
     Route: 048
     Dates: start: 20140227, end: 20160728

REACTIONS (8)
  - Diarrhoea [Recovered/Resolved]
  - Chest pain [Unknown]
  - Hypokalaemia [Not Recovered/Not Resolved]
  - Hypomagnesaemia [Unknown]
  - Diarrhoea [Not Recovered/Not Resolved]
  - Gastroenteritis [Unknown]
  - Pharyngitis [Unknown]
  - Urinary tract infection [Unknown]

NARRATIVE: CASE EVENT DATE: 20160721
